FAERS Safety Report 23851755 (Version 2)
Quarter: 2024Q2

REPORT INFORMATION
  Report Type: Report from Study
  Country: SK (occurrence: SK)
  Receive Date: 20240514
  Receipt Date: 20240516
  Transmission Date: 20240716
  Serious: Yes (Other)
  Sender: FDA-Public Use
  Company Number: SK-CELLTRION INC.-2024SK008821

PATIENT

DRUGS (5)
  1. RITUXIMAB [Suspect]
     Active Substance: RITUXIMAB
     Indication: Thrombotic thrombocytopenic purpura
     Dosage: 375 MG/M2 ONCE A WEEK
     Route: 051
  2. RITUXIMAB [Suspect]
     Active Substance: RITUXIMAB
     Dosage: 375 MG/M2 ONCE A WEEK
     Route: 051
  3. RITUXIMAB [Suspect]
     Active Substance: RITUXIMAB
     Dosage: 375 MG/M2 ONCE A WEEK
     Route: 051
     Dates: start: 202301
  4. RITUXIMAB [Suspect]
     Active Substance: RITUXIMAB
     Dosage: 375 MG/M2 ONCE A WEEK
     Route: 051
     Dates: start: 202301
  5. CAPLACIZUMAB [Suspect]
     Active Substance: CAPLACIZUMAB
     Indication: Thrombotic thrombocytopenic purpura
     Dosage: 10 MG ONCE A DAY VIA SUBCUTANEOUS ROUTE OF ADMINISTRATION UNTIL 23 JAN 2023 FOR A TOTAL 38 DOSES SIN
     Route: 058
     Dates: end: 20230123

REACTIONS (2)
  - Ophthalmic herpes simplex [Unknown]
  - Drug effective for unapproved indication [Unknown]

NARRATIVE: CASE EVENT DATE: 20230101
